FAERS Safety Report 13048147 (Version 1)
Quarter: 2016Q4

REPORT INFORMATION
  Report Type: Spontaneous
  Country: FR (occurrence: FR)
  Receive Date: 20161220
  Receipt Date: 20161220
  Transmission Date: 20170207
  Serious: Yes (Disabling, Other)
  Sender: FDA-Public Use
  Company Number: FR-MYLANLABS-2016M1055983

PATIENT

DRUGS (5)
  1. AUGMENTIN [Suspect]
     Active Substance: AMOXICILLIN\CLAVULANATE POTASSIUM
     Indication: INFECTION
     Dosage: 1 G, TID
     Dates: start: 20160506, end: 20160607
  2. CLINDAMYCIN. [Suspect]
     Active Substance: CLINDAMYCIN
     Indication: INFECTION
     Dosage: UNK
     Route: 042
     Dates: start: 20160508, end: 20160518
  3. GENTAMICINE                        /00047101/ [Suspect]
     Active Substance: GENTAMICIN
     Indication: INFECTION
     Dosage: 320 MG, QD
     Dates: start: 20160506, end: 20160507
  4. PIPERACILLIN,TAZOBACTAM MYLAN [Suspect]
     Active Substance: PIPERACILLIN SODIUM\TAZOBACTAM SODIUM
     Indication: INFECTION
     Dosage: 4 G, TID
     Route: 042
     Dates: start: 20160507, end: 20160518
  5. GENTAMICINE PANPHARMA [Suspect]
     Active Substance: GENTAMICIN
     Indication: INFECTION
     Dosage: UNK
     Route: 042
     Dates: start: 20160507, end: 20160518

REACTIONS (2)
  - Endotoxic shock [Unknown]
  - Deafness [Unknown]

NARRATIVE: CASE EVENT DATE: 201605
